FAERS Safety Report 12453748 (Version 3)
Quarter: 2016Q3

REPORT INFORMATION
  Report Type: Spontaneous
  Country: CH (occurrence: CH)
  Receive Date: 20160609
  Receipt Date: 20160714
  Transmission Date: 20161109
  Serious: Yes (Death, Other)
  Sender: FDA-Public Use
  Company Number: CH-BAUSCH-BL-2016-013310

PATIENT
  Age: 51 Year
  Sex: Female

DRUGS (56)
  1. MORPHINE [Concomitant]
     Active Substance: MORPHINE
     Dates: start: 20160218
  2. MORPHINE [Concomitant]
     Active Substance: MORPHINE
     Dates: start: 20160219
  3. MORPHINE [Concomitant]
     Active Substance: MORPHINE
     Dates: start: 20160226
  4. MORPHINE [Concomitant]
     Active Substance: MORPHINE
     Dates: start: 20160303
  5. EUTHYROX [Concomitant]
     Active Substance: LEVOTHYROXINE SODIUM
     Dates: start: 20160219
  6. MALTOFER [Concomitant]
     Active Substance: IRON POLYMALTOSE
     Dates: start: 20160219
  7. ANDREAFOL [Concomitant]
     Dates: start: 20160218
  8. CALCIMAGON [Concomitant]
     Active Substance: CALCIUM
     Dates: start: 20160220
  9. NACL (SODIUM CHLORIDE) [Concomitant]
  10. MORPHINE [Concomitant]
     Active Substance: MORPHINE
     Dates: start: 20160220
  11. MORPHINE [Concomitant]
     Active Substance: MORPHINE
     Dates: start: 20160302
  12. MORPHINE [Concomitant]
     Active Substance: MORPHINE
     Dates: start: 20160304
  13. MORPHINE [Concomitant]
     Active Substance: MORPHINE
     Dates: start: 20160305
  14. EUTHYROX [Concomitant]
     Active Substance: LEVOTHYROXINE SODIUM
     Indication: PRODUCT USED FOR UNKNOWN INDICATION
     Dates: start: 20160216
  15. EUTHYROX [Concomitant]
     Active Substance: LEVOTHYROXINE SODIUM
     Dates: start: 20160220
  16. MALTOFER [Concomitant]
     Active Substance: IRON POLYMALTOSE
     Dates: start: 20160304
  17. CALCIMAGON [Concomitant]
     Active Substance: CALCIUM
     Dates: start: 20160301
  18. MORPHINE [Concomitant]
     Active Substance: MORPHINE
     Dates: start: 20160221
  19. MORPHINE [Concomitant]
     Active Substance: MORPHINE
     Dates: start: 20160228
  20. MORPHINE [Concomitant]
     Active Substance: MORPHINE
     Dates: start: 20160306
  21. MALTOFER [Concomitant]
     Active Substance: IRON POLYMALTOSE
     Indication: PRODUCT USED FOR UNKNOWN INDICATION
     Dates: start: 20160216
  22. MALTOFER [Concomitant]
     Active Substance: IRON POLYMALTOSE
     Dates: start: 20160217
  23. MALTOFER [Concomitant]
     Active Substance: IRON POLYMALTOSE
     Dates: start: 20160301
  24. MALTOFER [Concomitant]
     Active Substance: IRON POLYMALTOSE
     Dates: start: 20160302
  25. MALTOFER [Concomitant]
     Active Substance: IRON POLYMALTOSE
     Dates: start: 20160305
  26. CALCIMAGON [Concomitant]
     Active Substance: CALCIUM
     Dates: start: 20160217
  27. CALCIMAGON [Concomitant]
     Active Substance: CALCIUM
     Dates: start: 20160219
  28. MORPHINE [Concomitant]
     Active Substance: MORPHINE
     Dates: start: 20160222
  29. MALTOFER [Concomitant]
     Active Substance: IRON POLYMALTOSE
     Dates: start: 20160220
  30. MALTOFER [Concomitant]
     Active Substance: IRON POLYMALTOSE
     Dates: start: 20160303
  31. CALCIMAGON [Concomitant]
     Active Substance: CALCIUM
     Indication: PRODUCT USED FOR UNKNOWN INDICATION
     Dates: start: 20160216
  32. CALCIMAGON [Concomitant]
     Active Substance: CALCIUM
     Dates: start: 20160218
  33. VISUDYNE [Suspect]
     Active Substance: VERTEPORFIN
     Indication: PHOTODYNAMIC THERAPY
     Route: 042
     Dates: start: 20160217, end: 20160217
  34. MORPHINE [Concomitant]
     Active Substance: MORPHINE
     Dates: start: 20160223
  35. MORPHINE [Concomitant]
     Active Substance: MORPHINE
     Dates: start: 20160224
  36. EUTHYROX [Concomitant]
     Active Substance: LEVOTHYROXINE SODIUM
     Dates: start: 20160217
  37. EUTHYROX [Concomitant]
     Active Substance: LEVOTHYROXINE SODIUM
     Dates: start: 20160218
  38. EUTHYROX [Concomitant]
     Active Substance: LEVOTHYROXINE SODIUM
     Dates: start: 20160301
  39. EUTHYROX [Concomitant]
     Active Substance: LEVOTHYROXINE SODIUM
     Dates: start: 20160302
  40. EUTHYROX [Concomitant]
     Active Substance: LEVOTHYROXINE SODIUM
     Dates: start: 20160305
  41. CALCIMAGON [Concomitant]
     Active Substance: CALCIUM
     Dates: start: 20160228
  42. CALCIMAGON [Concomitant]
     Active Substance: CALCIUM
     Dates: start: 20160304
  43. MORPHINE [Concomitant]
     Active Substance: MORPHINE
     Dates: start: 20160301
  44. EUTHYROX [Concomitant]
     Active Substance: LEVOTHYROXINE SODIUM
     Dates: start: 20160304
  45. CALCIMAGON [Concomitant]
     Active Substance: CALCIUM
     Dates: start: 20160229
  46. CALCIMAGON [Concomitant]
     Active Substance: CALCIUM
     Dates: start: 20160302
  47. NACL (SODIUM CHLORIDE) [Concomitant]
     Indication: PRODUCT USED FOR UNKNOWN INDICATION
     Dates: start: 20160217
  48. MORPHINE [Concomitant]
     Active Substance: MORPHINE
     Indication: COUGH
     Dates: start: 20160216
  49. MALTOFER [Concomitant]
     Active Substance: IRON POLYMALTOSE
     Dates: start: 20160228
  50. ANDREAFOL [Concomitant]
     Indication: PRODUCT USED FOR UNKNOWN INDICATION
     Dates: start: 20160217
  51. ANDREAFOL [Concomitant]
     Dates: start: 20160220
  52. NACL (SODIUM CHLORIDE) [Concomitant]
     Dates: start: 20160218
  53. MORPHINE [Concomitant]
     Active Substance: MORPHINE
     Dates: start: 20160227
  54. EUTHYROX [Concomitant]
     Active Substance: LEVOTHYROXINE SODIUM
     Dates: start: 20160303
  55. EUTHYROX [Concomitant]
     Active Substance: LEVOTHYROXINE SODIUM
     Dates: start: 20160306
  56. CALCIMAGON [Concomitant]
     Active Substance: CALCIUM
     Dates: start: 20160303

REACTIONS (48)
  - Hypokalaemia [Unknown]
  - Depression [Unknown]
  - C-reactive protein increased [Unknown]
  - Mobility decreased [Unknown]
  - Procalcitonin decreased [Unknown]
  - Anxiety [Unknown]
  - Hypoxia [Unknown]
  - Hypomagnesaemia [Unknown]
  - Emotional distress [Unknown]
  - Oedema [Unknown]
  - Respiratory failure [Fatal]
  - Insomnia [Unknown]
  - Respiratory acidosis [Unknown]
  - Chromaturia [Unknown]
  - Hypoproteinaemia [Unknown]
  - Metabolic alkalosis [Unknown]
  - Musculoskeletal pain [Unknown]
  - Dyspepsia [Unknown]
  - Palpitations [Unknown]
  - Neoplasm progression [Fatal]
  - Lung infiltration [Fatal]
  - Hypoalbuminaemia [Unknown]
  - Blood alkaline phosphatase increased [Unknown]
  - Throat irritation [Unknown]
  - Chest pain [Unknown]
  - Pneumonia [Fatal]
  - Leukaemic infiltration [Unknown]
  - Hypophosphataemia [Unknown]
  - Somnolence [Unknown]
  - Alkalosis [Unknown]
  - Neutrophilia [Unknown]
  - Musculoskeletal chest pain [Unknown]
  - Leukostasis syndrome [Unknown]
  - Hyponatraemia [Unknown]
  - Leukocytosis [Unknown]
  - Hypercreatininaemia [Unknown]
  - Atelectasis [Unknown]
  - Confusional state [Unknown]
  - Dysgeusia [Unknown]
  - Pain [Unknown]
  - Thrombocytosis [Unknown]
  - General physical health deterioration [Unknown]
  - Hypokalaemia [Unknown]
  - Peripheral coldness [Unknown]
  - Pneumonia bacterial [Unknown]
  - Oedema peripheral [Unknown]
  - Anaemia [Unknown]
  - Nausea [Unknown]

NARRATIVE: CASE EVENT DATE: 20160219
